FAERS Safety Report 6162862-X (Version None)
Quarter: 2009Q2

REPORT INFORMATION
  Report Type: 
  Country: None (occurrence: None)
  Receive Date: 20090421
  Receipt Date: 20081120
  Transmission Date: 20091009
  Serious: No
  Sender: FDA-Public Use
  Company Number: US-ASTRAZENECA-2008UW26077

PATIENT

DRUGS (1)
  1. METOPROLOL SUCCINATE [Suspect]
     Dosage: UNKNOWN
     Route: 048

REACTIONS (1)
  - BLOOD SODIUM INCREASED [None]
